FAERS Safety Report 25623334 (Version 1)
Quarter: 2025Q3

REPORT INFORMATION
  Report Type: Spontaneous
  Country: US (occurrence: None)
  Receive Date: 20250730
  Receipt Date: 20250730
  Transmission Date: 20251021
  Serious: No
  Sender: FDA-CTU
  Company Number: None

PATIENT
  Age: 42 Year
  Sex: Female

DRUGS (1)
  1. MONISTAT 1 COMBINATION PACK [Suspect]
     Active Substance: MICONAZOLE NITRATE
     Indication: Fungal infection
     Dosage: FREQUENCY : AT BEDTIME;?
     Route: 067
     Dates: start: 20250729, end: 20250729

REACTIONS (6)
  - Vulvovaginal burning sensation [None]
  - Vulvovaginal pruritus [None]
  - Vulvovaginal pain [None]
  - Condition aggravated [None]
  - Vulvovaginal discomfort [None]
  - Erythema [None]

NARRATIVE: CASE EVENT DATE: 20250729
